FAERS Safety Report 9847012 (Version 3)
Quarter: 2014Q2

REPORT INFORMATION
  Report Type: Spontaneous
  Country: JP (occurrence: JP)
  Receive Date: 20140127
  Receipt Date: 20140530
  Transmission Date: 20141212
  Serious: Yes (Hospitalization)
  Sender: FDA-Public Use
  Company Number: PHHY2013JP153420

PATIENT
  Age: 39 Year
  Sex: Female
  Weight: 61.5 kg

DRUGS (4)
  1. NEORAL [Suspect]
     Indication: RENAL TRANSPLANT
     Dosage: 125 MG, PER DAY
     Route: 048
  2. MEDROL [Suspect]
     Dosage: 8 MG, PER DAY
     Route: 048
  3. IMURAN [Suspect]
     Dosage: 50 MG, PER DAY
     Route: 048
  4. ASPIRIN [Concomitant]
     Dosage: 100 MG, PER DAY
     Route: 048

REACTIONS (8)
  - Renal cell carcinoma [Recovered/Resolved]
  - Renal haemorrhage [Recovered/Resolved]
  - Back pain [Unknown]
  - Flank pain [Recovered/Resolved]
  - Retroperitoneal haematoma [Unknown]
  - Tenderness [Unknown]
  - Anaemia [Unknown]
  - Skin lesion [Unknown]
